FAERS Safety Report 9005468 (Version 1)
Quarter: 2013Q1

REPORT INFORMATION
  Report Type: Spontaneous
  Country: US (occurrence: US)
  Receive Date: 20130109
  Receipt Date: 20130109
  Transmission Date: 20140127
  Serious: Yes (Death)
  Sender: FDA-Public Use
  Company Number: US-PFIZER INC-2013003328

PATIENT
  Age: 15 Year
  Sex: Female

DRUGS (7)
  1. SERTRALINE HCL [Suspect]
  2. ONDANSETRON [Suspect]
  3. IBUPROFEN [Suspect]
  4. LEVOTHYROXINE [Suspect]
  5. METHADONE [Suspect]
  6. BACLOFEN [Suspect]
  7. ACETAMINOPHEN W/HYDROCODONE BITARTRATE [Suspect]

REACTIONS (5)
  - Completed suicide [Fatal]
  - Cardiac arrest [Fatal]
  - Respiratory arrest [Fatal]
  - Intentional drug misuse [None]
  - Toxicity to various agents [None]
